FAERS Safety Report 18133316 (Version 1)
Quarter: 2020Q3

REPORT INFORMATION
  Report Type: Spontaneous
  Country: US (occurrence: US)
  Receive Date: 20200811
  Receipt Date: 20200811
  Transmission Date: 20201103
  Serious: Yes (Disabling, Other)
  Sender: FDA-Public Use
  Company Number: US-TORRENT-00010326

PATIENT
  Age: 64 Year
  Sex: Male

DRUGS (8)
  1. OLANZAPINE. [Suspect]
     Active Substance: OLANZAPINE
     Indication: CRANIOCEREBRAL INJURY
     Dosage: UNKNOWN
  2. GABAPENTIN. [Suspect]
     Active Substance: GABAPENTIN
     Indication: CRANIOCEREBRAL INJURY
     Dosage: UNKNOWN
  3. MODAFINIL. [Suspect]
     Active Substance: MODAFINIL
     Indication: CRANIOCEREBRAL INJURY
     Dosage: UNKNOWN
  4. LEVETIRACETAM. [Suspect]
     Active Substance: LEVETIRACETAM
     Indication: CRANIOCEREBRAL INJURY
     Dosage: UNKNOWN
  5. LAMOTRIGINE. [Suspect]
     Active Substance: LAMOTRIGINE
     Indication: CRANIOCEREBRAL INJURY
     Dosage: UNKNOWN
  6. ZOLPIDEM [Suspect]
     Active Substance: ZOLPIDEM TARTRATE
     Indication: CRANIOCEREBRAL INJURY
     Dosage: UNKNOWN
  7. IMIPRAMINE [Suspect]
     Active Substance: IMIPRAMINE
     Indication: CRANIOCEREBRAL INJURY
     Dosage: UNKNOWN
  8. CLARITHROMYCIN. [Suspect]
     Active Substance: CLARITHROMYCIN
     Indication: CRANIOCEREBRAL INJURY
     Dosage: UNKNOWN

REACTIONS (13)
  - Perseveration [Recovering/Resolving]
  - Drug interaction [Recovering/Resolving]
  - Fall [Recovering/Resolving]
  - Memory impairment [Recovering/Resolving]
  - Cognitive disorder [Recovering/Resolving]
  - Trismus [Recovering/Resolving]
  - Confabulation [Recovering/Resolving]
  - Drug-disease interaction [Recovering/Resolving]
  - Mental impairment [Recovering/Resolving]
  - Gait inability [Recovering/Resolving]
  - Delusion [Recovering/Resolving]
  - Muscle rigidity [Recovering/Resolving]
  - Gait disturbance [Recovering/Resolving]
